FAERS Safety Report 5716565-3 (Version None)
Quarter: 2008Q2

REPORT INFORMATION
  Report Type: 
  Country: None (occurrence: None)
  Receive Date: 20080424
  Receipt Date: 20080410
  Transmission Date: 20081010
  Serious: Yes (Hospitalization, Other)
  Sender: FDA-Public Use
  Company Number: US-AMGEN-US274080

PATIENT

DRUGS (6)
  1. ENBREL [Suspect]
     Route: 064
     Dates: start: 20070629, end: 20080211
  2. TYLENOL [Concomitant]
     Route: 064
     Dates: start: 20070702
  3. VITAMIN CAP [Concomitant]
     Route: 064
  4. ALEVE [Concomitant]
     Route: 064
     Dates: start: 20070801, end: 20070814
  5. CORTICOSTEROID NOS [Concomitant]
     Route: 064
     Dates: start: 20071009, end: 20071227
  6. PREDNISONE [Concomitant]
     Route: 064
     Dates: start: 20070805, end: 20071227

REACTIONS (4)
  - PNEUMOMEDIASTINUM [None]
  - PNEUMONIA [None]
  - RESPIRATORY DISTRESS [None]
  - TRANSIENT TACHYPNOEA OF THE NEWBORN [None]
